FAERS Safety Report 4283218-0 (Version None)
Quarter: 2004Q1

REPORT INFORMATION
  Report Type: 
  Country: None (occurrence: None)
  Receive Date: 20040129
  Receipt Date: 20031104
  Transmission Date: 20041129
  Serious: Yes (Death, Life-Threatening, Hospitalization, Disabling)
  Sender: FDA-Public Use
  Company Number: 2002AP02332

PATIENT
  Age: 72 Year
  Sex: Male
  Weight: 59 kg

DRUGS (9)
  1. IRESSA [Suspect]
     Indication: NON-SMALL CELL LUNG CANCER METASTATIC
     Dosage: 250 MG DAILY PO
     Route: 048
     Dates: start: 20020702, end: 20020711
  2. VINORELBINE TARTRATE [Suspect]
     Indication: NON-SMALL CELL LUNG CANCER
     Dosage: 50.4 MG/M2 ONCE IV
     Route: 042
     Dates: start: 20020702, end: 20020702
  3. VINORELBINE TARTRATE [Suspect]
     Indication: NON-SMALL CELL LUNG CANCER
     Dosage: 50.4 MG/M2 ONCE IV
     Route: 042
     Dates: start: 20020709, end: 20020709
  4. IPERTEN [Concomitant]
  5. TRAMADOL HCL [Concomitant]
  6. RANITIDINE [Concomitant]
  7. METHYLPREDNISOLONE [Concomitant]
  8. EPOGEN [Concomitant]
  9. ASPIRIN [Concomitant]

REACTIONS (6)
  - CARDIAC ARREST [None]
  - DEHYDRATION [None]
  - DIARRHOEA [None]
  - HYPERGLYCAEMIA [None]
  - PYREXIA [None]
  - RENAL FAILURE [None]
